FAERS Safety Report 10236019 (Version 1)
Quarter: 2014Q2

REPORT INFORMATION
  Report Type: Spontaneous
  Country: US (occurrence: None)
  Receive Date: 20140612
  Receipt Date: 20140612
  Transmission Date: 20141212
  Serious: Yes (Other)
  Sender: FDA-Public Use
  Company Number: None

PATIENT
  Sex: 0

DRUGS (4)
  1. RECLAST 5 MG/100ML [Suspect]
     Indication: OSTEOPOROSIS
     Dosage: 5 MG  ONCE ONLY INTRAVENOUS
     Route: 042
     Dates: start: 20140609
  2. ADVAIR [Concomitant]
  3. OXYCODONE [Concomitant]
  4. VOLTAREN GEL [Concomitant]

REACTIONS (4)
  - Myalgia [None]
  - Arthralgia [None]
  - Pyrexia [None]
  - Infusion related reaction [None]
